FAERS Safety Report 5390014-X (Version None)
Quarter: 2007Q3

REPORT INFORMATION
  Report Type: 
  Country: None (occurrence: None)
  Receive Date: 20070713
  Receipt Date: 20070628
  Transmission Date: 20080115
  Serious: Yes (Other)
  Sender: FDA-Public Use
  Company Number: GXKR2007TR05543

PATIENT
  Age: 35 Year
  Sex: Male

DRUGS (1)
  1. MEFLOQUINE [Suspect]
     Indication: PROPHYLACTIC CHEMOTHERAPY

REACTIONS (1)
  - PARKINSONISM [None]
